FAERS Safety Report 9601925 (Version 1)
Quarter: 2013Q4

REPORT INFORMATION
  Report Type: Spontaneous
  Country: US (occurrence: None)
  Receive Date: 20131004
  Receipt Date: 20131004
  Transmission Date: 20140711
  Serious: Yes (Other)
  Sender: FDA-Public Use
  Company Number: None

PATIENT
  Age: 65 Year
  Sex: Male
  Weight: 79.38 kg

DRUGS (2)
  1. CIPRO [Suspect]
     Indication: PROSTATITIS
     Route: 048
     Dates: start: 20120531, end: 20120603
  2. LEVOTHYROXINE [Concomitant]

REACTIONS (12)
  - Asthenia [None]
  - Joint swelling [None]
  - Visual impairment [None]
  - Parosmia [None]
  - Tinnitus [None]
  - Temperature intolerance [None]
  - Temperature intolerance [None]
  - Diarrhoea [None]
  - Feeling abnormal [None]
  - Psychotic disorder [None]
  - Depression [None]
  - Photosensitivity reaction [None]
